FAERS Safety Report 5569716-8 (Version None)
Quarter: 2007Q4

REPORT INFORMATION
  Report Type: 
  Country: None (occurrence: None)
  Receive Date: 20071220
  Receipt Date: 20071211
  Transmission Date: 20080405
  Serious: Yes (Other)
  Sender: FDA-Public Use
  Company Number: US-ALLERGAN-0713725US

PATIENT
  Sex: Male

DRUGS (3)
  1. ACULAR [Suspect]
     Indication: PROPHYLAXIS
     Dosage: UNK, QID
     Route: 047
  2. ACULAR [Suspect]
     Indication: POSTOPERATIVE CARE
  3. DEXAMETHASONE W/NEOMYCIN,POLYMYXIN B [Concomitant]
     Indication: POSTOPERATIVE CARE
     Dosage: UNK, QID
     Route: 047

REACTIONS (5)
  - EYE IRRITATION [None]
  - HYPOTONY OF EYE [None]
  - ULCERATIVE KERATITIS [None]
  - VISUAL ACUITY REDUCED [None]
  - WOUND DEHISCENCE [None]
